FAERS Safety Report 8889263 (Version 1)
Quarter: 2012Q4

REPORT INFORMATION
  Report Type: 
  Country: US (occurrence: US)
  Receive Date: 20121106
  Receipt Date: 20121106
  Transmission Date: 20130627
  Serious: Yes (Other)
  Sender: FDA-Public Use
  Company Number: US-ROCHE-1131885

PATIENT
  Age: 67 Year
  Sex: Male

DRUGS (7)
  1. RITUXAN [Suspect]
     Indication: IDIOPATHIC THROMBOCYTOPENIC PURPURA
     Route: 065
  2. RITUXAN [Suspect]
     Indication: OFF LABEL USE
  3. PREDNISONE [Concomitant]
     Route: 065
  4. LEUKERAN [Concomitant]
  5. IMURAN [Concomitant]
  6. CYTOXAN [Concomitant]
  7. IMMUNOGLOBULIN [Concomitant]
     Route: 042

REACTIONS (4)
  - Thrombocytopenia [Unknown]
  - Muscular weakness [Unknown]
  - Blood glucose increased [Unknown]
  - Oedema [Unknown]
